FAERS Safety Report 7704854-2 (Version None)
Quarter: 2011Q3

REPORT INFORMATION
  Report Type: 
  Country: None (occurrence: None)
  Receive Date: 20110823
  Receipt Date: 20110818
  Transmission Date: 20111222
  Serious: Yes (Other)
  Sender: FDA-Public Use
  Company Number: US-PFIZER INC-2011191408

PATIENT
  Sex: Female
  Weight: 68.934 kg

DRUGS (9)
  1. VITAMIN B6 [Concomitant]
     Dosage: UNK
  2. VITAMIN D [Concomitant]
     Dosage: UNK
  3. EFFEXOR XR [Suspect]
     Indication: OBSESSIVE-COMPULSIVE DISORDER
  4. CALCIUM [Concomitant]
     Dosage: UNK
  5. INOSITOL [Concomitant]
     Dosage: UNK
  6. LOVAZA [Concomitant]
     Dosage: UNK
  7. ASCORBIC ACID [Concomitant]
     Dosage: UNK
  8. CYANOCOBALAMIN [Concomitant]
     Dosage: UNK
  9. EFFEXOR XR [Suspect]
     Indication: DEPRESSION
     Dosage: 75 MG, 1X/DAY
     Route: 048
     Dates: start: 20110623

REACTIONS (3)
  - FLATULENCE [None]
  - GASTROINTESTINAL DISORDER [None]
  - DIARRHOEA [None]
